FAERS Safety Report 14657059 (Version 1)
Quarter: 2018Q1

REPORT INFORMATION
  Report Type: Spontaneous
  Country: US (occurrence: US)
  Receive Date: 20180319
  Receipt Date: 20180319
  Transmission Date: 20180509
  Serious: Yes (Other)
  Sender: FDA-Public Use
  Company Number: US-PFIZER INC-2016060580

PATIENT
  Age: 79 Year
  Sex: Female

DRUGS (19)
  1. MYSOLINE [Concomitant]
     Active Substance: PRIMIDONE
     Indication: SEIZURE
     Dosage: 500 MG, DAILY
  2. ALEVE [Concomitant]
     Active Substance: NAPROXEN SODIUM
     Indication: PAIN
     Dosage: 220 MG, AS NEEDED (1 BY MOUTH TWICE DAILY)
     Route: 048
  3. DOCUSATE SODIUM. [Concomitant]
     Active Substance: DOCUSATE SODIUM
     Indication: CONSTIPATION
     Dosage: 100 MG, 1X/DAY
     Route: 048
  4. MIRAPEX [Concomitant]
     Active Substance: PRAMIPEXOLE DIHYDROCHLORIDE
     Indication: RESTLESS LEGS SYNDROME
     Dosage: 0.25 MG, 1X/DAY (TAKE 1 IN THE EVENING)
     Route: 048
  5. ZYRTEC [Concomitant]
     Active Substance: CETIRIZINE HYDROCHLORIDE
     Indication: HYPERSENSITIVITY
     Dosage: 10 MG, 2X/DAY
     Route: 048
  6. MILK OF MAGNESIA [Concomitant]
     Active Substance: MAGNESIUM HYDROXIDE
     Indication: CONSTIPATION
     Dosage: 400MG/ML SUSP AT 2 TABLESPOONS AT NIGHT AS NEEDED
  7. IBUPROFEN. [Concomitant]
     Active Substance: IBUPROFEN
     Indication: PAIN
     Dosage: 600 MG, AS NEEDED (1 BY MOUTH UP TO 3 TIMES DAILY)
     Route: 048
  8. VITAMIN D [Concomitant]
     Active Substance: CHOLECALCIFEROL
     Indication: BONE DISORDER
     Dosage: 2000 IU, DAILY
     Route: 048
  9. VITAMIN E [Concomitant]
     Active Substance: .ALPHA.-TOCOPHEROL
     Indication: VITAMIN SUPPLEMENTATION
     Dosage: 400 IU, 1X/DAY
     Route: 048
  10. MIRALAX [Concomitant]
     Active Substance: POLYETHYLENE GLYCOL 3350
     Indication: CONSTIPATION
     Dosage: 1TBSP IN 8OZ WATER DAILY AS NEEDED
  11. VITAMIN D [Concomitant]
     Active Substance: CHOLECALCIFEROL
     Indication: VITAMIN D DEFICIENCY
  12. CALCIUM PLUS VITAMIN D3 [Concomitant]
     Indication: BONE DISORDER
     Dosage: [CALCIUM CARBONATE: 600 MG/COLECALCIFEROL: 500 IU], 2X/DAY
     Route: 048
  13. CHAMOMILE [Concomitant]
     Active Substance: CHAMOMILE
     Indication: SLEEP DISORDER
     Dosage: UNK, ALTERNATE DAY
  14. DILANTIN [Suspect]
     Active Substance: PHENYTOIN
     Indication: SEIZURE
     Dosage: 100 MG, 3X/DAY
     Route: 048
  15. MYSOLINE [Concomitant]
     Active Substance: PRIMIDONE
     Dosage: 750 MG, DAILY
  16. FUROSEMIDE. [Concomitant]
     Active Substance: FUROSEMIDE
     Indication: FLUID RETENTION
     Dosage: 40 MG, 1X/DAY (TAKE 2 BY MOUTH ONCE DAILY IN AM)
     Route: 048
  17. MECLIZINE HCL [Concomitant]
     Active Substance: MECLIZINE HYDROCHLORIDE
     Indication: DIZZINESS
     Dosage: 25 MG, AS NEEDED (ONE TAB BY MOUTH EVERY 4-8 HOURS)
     Route: 048
  18. FOLIC ACID. [Concomitant]
     Active Substance: FOLIC ACID
     Indication: VITAMIN SUPPLEMENTATION
     Dosage: 1 MG, 1X/DAY
     Route: 048
  19. VITAMIN C [Concomitant]
     Active Substance: ASCORBIC ACID
     Indication: VITAMIN SUPPLEMENTATION
     Dosage: 1000 MG, 1X/DAY (TAKE 2 BY MOUTH)
     Route: 048

REACTIONS (1)
  - Pneumonia [Unknown]
